FAERS Safety Report 5915327-1 (Version None)
Quarter: 2008Q4

REPORT INFORMATION
  Report Type: 
  Country: None (occurrence: None)
  Receive Date: 20081010
  Receipt Date: 20080930
  Transmission Date: 20090506
  Serious: Yes (Death)
  Sender: FDA-Public Use
  Company Number: US-SANOFI-SYNTHELABO-A03200803706

PATIENT
  Age: 81 Year
  Sex: Female

DRUGS (1)
  1. AMBIEN [Suspect]
     Indication: DRUG USE FOR UNKNOWN INDICATION
     Dosage: HER SON GAVE HER TWO PILLS
     Route: 048

REACTIONS (3)
  - DEATH [None]
  - SUICIDE OF RELATIVE [None]
  - UNRESPONSIVE TO STIMULI [None]
